FAERS Safety Report 8426405-X (Version None)
Quarter: 2012Q2

REPORT INFORMATION
  Report Type: 
  Country: None (occurrence: None)
  Receive Date: 20120611
  Receipt Date: 20120601
  Transmission Date: 20120825
  Serious: Yes (Other)
  Sender: FDA-Public Use
  Company Number: GB-SANOFI-AVENTIS-2012SA039122

PATIENT
  Age: 59 Year
  Sex: Female
  Weight: 117 kg

DRUGS (9)
  1. THIAMINE [Concomitant]
     Dates: start: 20120228, end: 20120424
  2. CITALOPRAM [Concomitant]
     Dates: start: 20120501
  3. OLANZAPINE [Concomitant]
     Dates: start: 20120501
  4. CLOPIDOGREL BISULFATE [Suspect]
     Indication: ACUTE CORONARY SYNDROME
     Route: 065
  5. CITALOPRAM [Concomitant]
     Dates: start: 20120206, end: 20120425
  6. THIAMINE [Concomitant]
     Dates: start: 20120501
  7. VITAMIN B COMPLEX CAP [Concomitant]
     Dates: start: 20120228, end: 20120424
  8. OLANZAPINE [Concomitant]
     Dates: start: 20120228, end: 20120425
  9. VITAMIN B COMPLEX CAP [Concomitant]
     Dates: start: 20120501

REACTIONS (2)
  - DRUG RASH WITH EOSINOPHILIA AND SYSTEMIC SYMPTOMS [None]
  - RASH MACULO-PAPULAR [None]
